FAERS Safety Report 9185658 (Version 2)
Quarter: 2014Q1

REPORT INFORMATION
  Report Type: Spontaneous
  Country: US (occurrence: US)
  Receive Date: 20130325
  Receipt Date: 20140306
  Transmission Date: 20141002
  Serious: No
  Sender: FDA-Public Use
  Company Number: US-B.I. PHARMACEUTICALS,INC./RIDGEFIELD-2012-BP-26619BP

PATIENT
  Age: 82 Year
  Sex: Female
  Weight: 65 kg

DRUGS (12)
  1. PRADAXA [Suspect]
     Indication: CARDIAC DISORDER
     Dosage: 300 MG
     Route: 048
     Dates: start: 20121008
  2. AMLODIPINE [Concomitant]
     Indication: HEART RATE IRREGULAR
     Dosage: 200 MG
     Route: 048
     Dates: start: 20121008
  3. BABY ASPIRIN [Concomitant]
     Indication: HEART RATE IRREGULAR
     Dosage: 81 MG
     Route: 048
  4. CARDIZEM [Concomitant]
     Indication: HYPERTENSION
     Dosage: 240 MG
     Route: 048
  5. CARDIZEM [Concomitant]
     Indication: HEART RATE IRREGULAR
  6. STOOL SOFTNER [Concomitant]
     Indication: CONSTIPATION
     Route: 048
  7. LIPITOR [Concomitant]
     Indication: BLOOD CHOLESTEROL INCREASED
     Dosage: 10 MG
     Route: 048
  8. ROBITUSSIN [Concomitant]
     Indication: COUGH
     Route: 048
     Dates: start: 20121008
  9. FOLIC ACID [Concomitant]
     Dosage: 1 MG
     Route: 048
  10. EYE DROPS [Concomitant]
  11. INHALER [Concomitant]
     Indication: CHRONIC OBSTRUCTIVE PULMONARY DISEASE
     Route: 055
  12. GLIPIZIDE ER [Concomitant]
     Indication: DIABETES MELLITUS
     Dosage: 5 MG
     Route: 048

REACTIONS (9)
  - Muscle spasticity [Not Recovered/Not Resolved]
  - Nervousness [Not Recovered/Not Resolved]
  - Dry skin [Unknown]
  - Dry mouth [Unknown]
  - Alopecia [Unknown]
  - Faeces discoloured [Not Recovered/Not Resolved]
  - Feeling hot [Not Recovered/Not Resolved]
  - Flushing [Not Recovered/Not Resolved]
  - Asthenia [Not Recovered/Not Resolved]
